FAERS Safety Report 9547663 (Version 2)
Quarter: 2013Q4

REPORT INFORMATION
  Report Type: Spontaneous
  Country: CA (occurrence: CA)
  Receive Date: 20130924
  Receipt Date: 20131018
  Transmission Date: 20140711
  Serious: Yes (Other)
  Sender: FDA-Public Use
  Company Number: CA-ROCHE-1278808

PATIENT
  Sex: Female

DRUGS (3)
  1. XOLAIR [Suspect]
     Indication: ASTHMA
     Route: 058
     Dates: start: 20130917
  2. XOLAIR [Suspect]
     Route: 058
     Dates: start: 20131015
  3. BRICANYL [Concomitant]

REACTIONS (3)
  - Blood pressure increased [Not Recovered/Not Resolved]
  - Paraesthesia [Recovered/Resolved]
  - Pruritus [Recovered/Resolved]
